FAERS Safety Report 8406744 (Version 5)
Quarter: 2013Q2

REPORT INFORMATION
  Report Type: Report from Study
  Country: PL (occurrence: PL)
  Receive Date: 20120215
  Receipt Date: 20130613
  Transmission Date: 20140414
  Serious: Yes (Other)
  Sender: FDA-Public Use
  Company Number: PL-ROCHE-1033740

PATIENT
  Age: 63 Year
  Sex: Female
  Weight: 55.8 kg

DRUGS (1)
  1. VEMURAFENIB [Suspect]
     Indication: MALIGNANT MELANOMA
     Dosage: LAST DOSE PRIOR TO SAE: 23/JAN/2012
     Route: 048
     Dates: start: 20111227

REACTIONS (1)
  - Melanocytic naevus [Recovered/Resolved]
